FAERS Safety Report 8831326 (Version 1)
Quarter: 2012Q4

REPORT INFORMATION
  Report Type: 
  Country: US (occurrence: US)
  Receive Date: 20121008
  Receipt Date: 20121008
  Transmission Date: 20130627
  Serious: Yes (Hospitalization)
  Sender: FDA-Public Use
  Company Number: US-PFIZER INC-2012221160

PATIENT
  Age: 74 Year
  Sex: Male
  Weight: 56.69 kg

DRUGS (9)
  1. SUTENT [Suspect]
     Indication: GASTROINTESTINAL CARCINOMA
     Dosage: 50 mg, once a day
     Dates: start: 20120906, end: 201209
  2. DICYCLOMINE [Concomitant]
     Indication: ABDOMINAL PAIN UPPER
     Dosage: 20 mg, 3x/day
  3. BENAZEPRIL [Concomitant]
     Dosage: UNK
  4. AMLODIPINE [Concomitant]
     Dosage: UNK
  5. FLOMAX TAMSULOSIN [Concomitant]
     Indication: PROSTATIC DISORDER
     Dosage: UNK
  6. DOXAZOSIN [Concomitant]
     Dosage: UNK
  7. BABY ASPIRIN [Concomitant]
     Dosage: 81 mg, UNK
  8. SANDOSTATIN [Concomitant]
     Dosage: UNK
     Route: 042
  9. POTASSIUM [Concomitant]
     Dosage: UNK

REACTIONS (5)
  - Fall [Unknown]
  - Dizziness [Unknown]
  - Vomiting [Unknown]
  - Dehydration [Unknown]
  - Decreased appetite [Unknown]
